FAERS Safety Report 4997859-6 (Version None)
Quarter: 2006Q2

REPORT INFORMATION
  Report Type: 
  Country: None (occurrence: None)
  Receive Date: 20060508
  Receipt Date: 20060508
  Transmission Date: 20061013
  Serious: Yes (Death)
  Sender: FDA-Public Use
  Company Number: None

PATIENT
  Age: 29 Year
  Sex: Male
  Weight: 83.0083 kg

DRUGS (1)
  1. ISONIAZID [Suspect]
     Indication: TUBERCULIN TEST POSITIVE
     Dosage: 300 MG PO QD
     Route: 048
     Dates: start: 20051007, end: 20060221

REACTIONS (9)
  - BRAIN DEATH [None]
  - BRAIN HERNIATION [None]
  - BRAIN OEDEMA [None]
  - CARPAL TUNNEL SYNDROME [None]
  - CHROMATURIA [None]
  - FATIGUE [None]
  - HEPATITIS FULMINANT [None]
  - NAUSEA [None]
  - OCULAR ICTERUS [None]
